FAERS Safety Report 12820611 (Version 1)
Quarter: 2016Q4

REPORT INFORMATION
  Report Type: Report from Study
  Country: US (occurrence: US)
  Receive Date: 20161006
  Receipt Date: 20161006
  Transmission Date: 20170207
  Serious: Yes (Life-Threatening, Other)
  Sender: FDA-Public Use
  Company Number: US-TAKEDA-2016MPI008496

PATIENT
  Sex: Female

DRUGS (1)
  1. IXAZOMIB [Suspect]
     Active Substance: IXAZOMIB
     Indication: PLASMA CELL MYELOMA
     Dosage: UNK
     Route: 065

REACTIONS (6)
  - Malaise [Unknown]
  - Rib fracture [Unknown]
  - Adverse drug reaction [Unknown]
  - Spinal fracture [Unknown]
  - Suicidal ideation [Unknown]
  - Cardio-respiratory arrest [Unknown]
